FAERS Safety Report 6712494-7 (Version None)
Quarter: 2010Q2

REPORT INFORMATION
  Report Type: 
  Country: None (occurrence: None)
  Receive Date: 20100506
  Receipt Date: 20100504
  Transmission Date: 20101027
  Serious: Yes (Other)
  Sender: FDA-Public Use
  Company Number: US-ASTRAZENECA-2007UW17978

PATIENT
  Age: 414 Month
  Sex: Female
  Weight: 79.4 kg

DRUGS (8)
  1. SEROQUEL [Suspect]
     Indication: SLEEP DISORDER
     Dosage: 100-200 MG
     Route: 048
     Dates: start: 20000401, end: 20041001
  2. SEROQUEL [Suspect]
     Indication: SCHIZOPHRENIA
     Dosage: 100-200 MG
     Route: 048
     Dates: start: 20000401, end: 20041001
  3. SEROQUEL [Suspect]
     Indication: DEPRESSION
     Dosage: 100-200 MG
     Route: 048
     Dates: start: 20000401, end: 20041001
  4. RISPERDAL [Concomitant]
     Indication: SCHIZOPHRENIA
     Dates: start: 19980101
  5. RISPERDAL [Concomitant]
     Indication: DEPRESSION
     Dates: start: 19980101
  6. ZYPREXA [Concomitant]
     Indication: SCHIZOPHRENIA
     Dates: start: 20080701
  7. ZYPREXA [Concomitant]
     Indication: DEPRESSION
     Dates: start: 20080701
  8. ABILIFY [Concomitant]

REACTIONS (1)
  - NEUROPATHY PERIPHERAL [None]
